FAERS Safety Report 24143442 (Version 5)
Quarter: 2024Q4

REPORT INFORMATION
  Report Type: Report from Study
  Country: CO (occurrence: CO)
  Receive Date: 20240726
  Receipt Date: 20241107
  Transmission Date: 20250115
  Serious: Yes (Death, Hospitalization)
  Sender: ABBVIE
  Company Number: CO-ABBVIE-5853296

PATIENT
  Age: 68 Year
  Sex: Female
  Weight: 56 kg

DRUGS (3)
  1. VENCLEXTA [Suspect]
     Active Substance: VENETOCLAX
     Indication: Acute myeloid leukaemia
     Dosage: FORM STRENGTH WAS 100 MILLIGRAM
     Route: 048
     Dates: start: 20230304, end: 20240825
  2. AZACITIDINE [Suspect]
     Active Substance: AZACITIDINE
     Indication: Acute myeloid leukaemia
     Dosage: 7-DAY CYCLE
     Route: 058
     Dates: start: 20240729, end: 20240804
  3. AZACITIDINE [Suspect]
     Active Substance: AZACITIDINE
     Indication: Acute myeloid leukaemia
     Dosage: FREQUENCY TEXT: 7-DAY CYCLE
     Route: 058
     Dates: start: 2022, end: 20240616

REACTIONS (16)
  - Death [Fatal]
  - Sneezing [Recovering/Resolving]
  - Influenza [Recovered/Resolved]
  - Weight decreased [Not Recovered/Not Resolved]
  - Toothache [Recovering/Resolving]
  - Rhinalgia [Recovering/Resolving]
  - Nasal inflammation [Recovering/Resolving]
  - Epistaxis [Recovered/Resolved]
  - Chronic sinusitis [Recovered/Resolved]
  - Decreased appetite [Recovering/Resolving]
  - Unevaluable event [Not Recovered/Not Resolved]
  - Platelet count decreased [Not Recovered/Not Resolved]
  - Injection site bruising [Unknown]
  - Injection site swelling [Unknown]
  - Haemoglobin decreased [Not Recovered/Not Resolved]
  - Toxicity to various agents [Not Recovered/Not Resolved]

NARRATIVE: CASE EVENT DATE: 20240101
